FAERS Safety Report 16704227 (Version 2)
Quarter: 2019Q4

REPORT INFORMATION
  Report Type: Spontaneous
  Country: US (occurrence: US)
  Receive Date: 20190814
  Receipt Date: 20191030
  Transmission Date: 20200122
  Serious: No
  Sender: FDA-Public Use
  Company Number: US-ACTELION-A-US2019-194177

PATIENT
  Age: 53 Year
  Sex: Female

DRUGS (3)
  1. UPTRAVI [Suspect]
     Active Substance: SELEXIPAG
     Dosage: 400 MCG
     Route: 048
  2. UPTRAVI [Suspect]
     Active Substance: SELEXIPAG
     Indication: PULMONARY ARTERIAL HYPERTENSION
     Dosage: 800 MCG, BID
     Route: 048
  3. UPTRAVI [Suspect]
     Active Substance: SELEXIPAG
     Dosage: 200 MCG, BID
     Route: 048
     Dates: start: 20190802

REACTIONS (3)
  - Drug titration error [Unknown]
  - Malaise [Unknown]
  - Tremor [Unknown]

NARRATIVE: CASE EVENT DATE: 20190802
